FAERS Safety Report 9419432 (Version 2)
Quarter: 2013Q3

REPORT INFORMATION
  Report Type: Spontaneous
  Country: BR (occurrence: BR)
  Receive Date: 20130725
  Receipt Date: 20130823
  Transmission Date: 20140515
  Serious: Yes (Death)
  Sender: FDA-Public Use
  Company Number: BR-PFIZER INC-2013215394

PATIENT
  Age: 61 Year
  Sex: Male

DRUGS (2)
  1. SUTENT [Suspect]
     Indication: RENAL CANCER
     Dosage: 50 MG, CYCLIC
     Route: 048
     Dates: start: 201303, end: 201306
  2. CLORANA [Concomitant]
     Indication: HYPERTENSION

REACTIONS (9)
  - Pneumonia [Fatal]
  - Disease progression [Fatal]
  - Renal cancer [Fatal]
  - Drug intolerance [Unknown]
  - Pharyngitis [Unknown]
  - Asthenia [Unknown]
  - Platelet count decreased [Unknown]
  - Thyroid disorder [Unknown]
  - Blood glucose increased [Unknown]
